FAERS Safety Report 8488760-4 (Version None)
Quarter: 2012Q3

REPORT INFORMATION
  Report Type: 
  Country: None (occurrence: None)
  Receive Date: 20120705
  Receipt Date: 20120628
  Transmission Date: 20120928
  Serious: Yes (Hospitalization)
  Sender: FDA-Public Use
  Company Number: US-ROCHE-1052118

PATIENT
  Age: 57 Year
  Sex: Female

DRUGS (7)
  1. PHENERGAN HCL [Concomitant]
     Indication: NAUSEA
     Route: 054
     Dates: start: 20111012, end: 20111014
  2. COPEGUS [Suspect]
     Indication: HEPATITIS C
     Route: 048
     Dates: start: 20110705
  3. ESCITALOPRAM OXALATE [Concomitant]
     Indication: DEPRESSION
     Route: 048
     Dates: start: 20111012
  4. BLINDED ABT-267 (HCV NS5A INHIBITOR) [Suspect]
     Indication: HEPATITIS C
     Route: 048
     Dates: start: 20110705, end: 20110927
  5. KLIOGEST N [Concomitant]
     Indication: NIGHT SWEATS
     Route: 065
     Dates: start: 20110501
  6. FLUTICASONE PROPIONATE [Concomitant]
     Indication: HYPERSENSITIVITY
     Dosage: 2 SPRAYS IN EACH NOSTRIL ( G50 MICROGRMA AS REQUIRED)
     Dates: start: 20110729
  7. PEGASYS [Suspect]
     Indication: HEPATITIS C
     Route: 058
     Dates: start: 20110705

REACTIONS (4)
  - DEHYDRATION [None]
  - MUSCULAR WEAKNESS [None]
  - ARTHRALGIA [None]
  - MALNUTRITION [None]
